FAERS Safety Report 10196543 (Version 2)
Quarter: 2014Q2

REPORT INFORMATION
  Report Type: Spontaneous
  Country: FR (occurrence: FR)
  Receive Date: 20140527
  Receipt Date: 20140612
  Transmission Date: 20141212
  Serious: Yes (Death, Hospitalization)
  Sender: FDA-Public Use
  Company Number: FR-BAYER-2014-077192

PATIENT
  Age: 79 Year
  Sex: Female
  Weight: 74 kg

DRUGS (2)
  1. ULTRAVIST [Suspect]
     Indication: X-RAY
     Dosage: 80 ML, ONCE AT 1.6 ML/S
     Route: 042
     Dates: start: 20140507, end: 20140507
  2. ULTRAVIST [Suspect]
     Indication: COMPUTERISED TOMOGRAM

REACTIONS (2)
  - Anaphylactic shock [Fatal]
  - Hypotension [Fatal]
